FAERS Safety Report 15633516 (Version 1)
Quarter: 2018Q4

REPORT INFORMATION
  Report Type: Spontaneous
  Country: US (occurrence: US)
  Receive Date: 20181119
  Receipt Date: 20181119
  Transmission Date: 20190205
  Serious: Yes (Other)
  Sender: FDA-Public Use
  Company Number: US-SA-2018SA001924

PATIENT
  Age: 70 Year
  Sex: Female
  Weight: 86.18 kg

DRUGS (9)
  1. CLONIDINE. [Concomitant]
     Active Substance: CLONIDINE
     Dosage: UNK UNK,UNK
     Route: 065
     Dates: start: 20020101
  2. ZOLOFT [Concomitant]
     Active Substance: SERTRALINE HYDROCHLORIDE
  3. TAXOTERE [Suspect]
     Active Substance: DOCETAXEL
     Dosage: 190 MG,QCY
     Route: 042
     Dates: start: 20050720, end: 20050720
  4. NEOSAR [Concomitant]
     Active Substance: CYCLOPHOSPHAMIDE
  5. ALPRAZOLAM. [Concomitant]
     Active Substance: ALPRAZOLAM
  6. NORVASC [Concomitant]
     Active Substance: AMLODIPINE BESYLATE
  7. DOXORUBICIN [Concomitant]
     Active Substance: DOXORUBICIN
  8. TAXOTERE [Suspect]
     Active Substance: DOCETAXEL
     Indication: BREAST CANCER FEMALE
     Dosage: 190 MG,QCY
     Route: 042
     Dates: start: 20050519, end: 20050519
  9. DARVOCET [DEXTROPROPOXYPHENE HYDROCHLORIDE;PARACETAMOL] [Concomitant]

REACTIONS (2)
  - Alopecia [Recovering/Resolving]
  - Psychological trauma [Unknown]

NARRATIVE: CASE EVENT DATE: 20170228
